FAERS Safety Report 4538110-0 (Version None)
Quarter: 2004Q4

REPORT INFORMATION
  Report Type: 
  Country: None (occurrence: None)
  Receive Date: 20041227
  Receipt Date: 20040830
  Transmission Date: 20050328
  Serious: Yes (Hospitalization, Other)
  Sender: FDA-Public Use
  Company Number: CA-BRISTOL-MYERS SQUIBB COMPANY-12687174

PATIENT
  Age: 61 Year
  Sex: Female

DRUGS (11)
  1. ABATACEPT [Suspect]
     Indication: RHEUMATOID ARTHRITIS
     Route: 042
     Dates: start: 20031218, end: 20040311
  2. METHOTREXATE [Suspect]
     Indication: RHEUMATOID ARTHRITIS
     Route: 048
     Dates: start: 19960807, end: 19960801
  3. KINERET [Suspect]
     Indication: RHEUMATOID ARTHRITIS
     Route: 058
     Dates: start: 20030402, end: 20040206
  4. ENBREL [Suspect]
     Indication: RHEUMATOID ARTHRITIS
     Route: 058
     Dates: start: 20020201, end: 20030402
  5. MIACALCIN [Concomitant]
     Dosage: INTRANASAL
     Dates: start: 20020101
  6. CALCIUM + VITAMIN D [Concomitant]
     Dosage: DOSAGE FORM = CAPSULE
     Route: 048
     Dates: start: 20030513
  7. LEVOTHYROXINE SODIUM [Concomitant]
     Route: 048
     Dates: start: 19960101
  8. ASPIRIN [Concomitant]
     Route: 048
     Dates: start: 20030702
  9. CANDESARTAN CILEXETIL [Concomitant]
     Dosage: INCREASED FROM 4MG/DAY TO 8MG/DAY ON 23-FEB-2004
     Dates: start: 20040213
  10. OXTRIPHYLLINE [Concomitant]
     Dates: start: 20040303
  11. TYLENOL (CAPLET) [Concomitant]
     Route: 048
     Dates: start: 20040312

REACTIONS (7)
  - DRUG INEFFECTIVE [None]
  - HAEMATOCRIT DECREASED [None]
  - HAEMOGLOBIN DECREASED [None]
  - METASTASES TO LYMPH NODES [None]
  - POST PROCEDURAL HAEMORRHAGE [None]
  - RECTAL CANCER [None]
  - RECTOSIGMOID CANCER [None]
